FAERS Safety Report 6132608-X (Version None)
Quarter: 2009Q1

REPORT INFORMATION
  Report Type: 
  Country: None (occurrence: None)
  Receive Date: 20090324
  Receipt Date: 20090317
  Transmission Date: 20090719
  Serious: Yes (Congenital Anomaly)
  Sender: FDA-Public Use
  Company Number: 2009JP000437

PATIENT
  Sex: Female
  Weight: 60 kg

DRUGS (3)
  1. PROGRAF [Suspect]
  2. IMURAN [Concomitant]
  3. STEROID [Concomitant]

REACTIONS (3)
  - CONGENITAL ANOMALY [None]
  - INTRA-UTERINE DEATH [None]
  - MATERNAL DRUGS AFFECTING FOETUS [None]
